FAERS Safety Report 25316758 (Version 1)
Quarter: 2025Q2

REPORT INFORMATION
  Report Type: Spontaneous
  Country: US (occurrence: US)
  Receive Date: 20250515
  Receipt Date: 20250515
  Transmission Date: 20250717
  Serious: Yes (Other)
  Sender: Unknown Manufacturer
  Company Number: US-MELINTA THERAPEUTICS, LLC-US-MLNT-25-00123

PATIENT

DRUGS (1)
  1. METOPROLOL SUCCINATE [Suspect]
     Active Substance: METOPROLOL SUCCINATE
     Indication: Product used for unknown indication

REACTIONS (8)
  - Loss of consciousness [Unknown]
  - Fractured coccyx [Unknown]
  - Metamorphopsia [Not Recovered/Not Resolved]
  - Colour blindness [Not Recovered/Not Resolved]
  - Blood pressure decreased [Unknown]
  - Dry mouth [Unknown]
  - Dry eye [Unknown]
  - Hypoaesthesia [Unknown]

NARRATIVE: CASE EVENT DATE: 20240501
